FAERS Safety Report 6788403-1 (Version None)
Quarter: 2010Q2

REPORT INFORMATION
  Report Type: 
  Country: None (occurrence: None)
  Receive Date: 20100623
  Receipt Date: 20080213
  Transmission Date: 20101027
  Serious: No
  Sender: FDA-Public Use
  Company Number: US-PFIZER INC-2008023555

PATIENT
  Age: 40 Year
  Sex: Female

DRUGS (8)
  1. NELFINAVIR MESILATE [Suspect]
     Route: 048
     Dates: start: 20070428, end: 20070917
  2. INVIRASE [Suspect]
     Dosage: 2000 DAILY
     Route: 048
     Dates: start: 20070917
  3. NORVIR [Suspect]
     Dosage: 200 DAILY
     Route: 048
     Dates: start: 20070917
  4. COMBIVIR [Suspect]
     Dosage: 900 DAILY
     Route: 048
     Dates: start: 20070828
  5. ALL OTHER THERAPEUTIC PRODUCTS [Concomitant]
  6. ZANTAC [Concomitant]
  7. METRONIDAZOLE [Concomitant]
  8. PRENATAL [Concomitant]

REACTIONS (1)
  - VAGINITIS BACTERIAL [None]
